FAERS Safety Report 12243809 (Version 2)
Quarter: 2016Q2

REPORT INFORMATION
  Report Type: Spontaneous
  Country: ES (occurrence: ES)
  Receive Date: 20160406
  Receipt Date: 20160407
  Transmission Date: 20160815
  Serious: Yes (Other)
  Sender: FDA-Public Use
  Company Number: PHHY2016ES042900

PATIENT
  Age: 74 Year
  Sex: Female

DRUGS (3)
  1. VOLTAREN [Suspect]
     Active Substance: DICLOFENAC SODIUM
     Indication: TENDONITIS
     Dosage: 100 MG, BID
     Route: 048
     Dates: start: 20160308, end: 20160316
  2. DICLOFENAC [Suspect]
     Active Substance: DICLOFENAC
     Indication: TENDONITIS
     Dosage: 75 MG, QD
     Route: 030
     Dates: start: 20160308, end: 20160313
  3. OMEPRAZOLE. [Suspect]
     Active Substance: OMEPRAZOLE
     Indication: PRODUCT USED FOR UNKNOWN INDICATION
     Dosage: 20 MG, QD
     Route: 048
     Dates: start: 20160308

REACTIONS (2)
  - Swollen tongue [Unknown]
  - Lip swelling [Unknown]

NARRATIVE: CASE EVENT DATE: 20160315
